FAERS Safety Report 4903520-6 (Version None)
Quarter: 2006Q1

REPORT INFORMATION
  Report Type: 
  Country: None (occurrence: None)
  Receive Date: 20060203
  Receipt Date: 20060125
  Transmission Date: 20060701
  Serious: Yes (Hospitalization)
  Sender: FDA-Public Use
  Company Number: TCI2006A00387

PATIENT
  Age: 66 Year
  Sex: Female

DRUGS (6)
  1. ACTOS [Suspect]
     Indication: DIABETES MELLITUS
     Dosage: 15 MG (15 MG, 1 D) PER ORAL
     Route: 048
     Dates: start: 20040712, end: 20051208
  2. BLOPRESS (CANDESARTAN CILEXETIL) [Suspect]
     Dosage: 8 MG (8 MG, 1 D) PER ORAL
     Route: 048
  3. KINEDAK (EPALRESTAT) [Suspect]
     Dosage: 50 MG (50 MG, 1 D) PER ORAL
     Route: 048
     Dates: end: 20051208
  4. EUGLUCON (GLIBENCLAMIDE) [Suspect]
     Dosage: (1 D) PER ORAL
     Route: 048
  5. NORVASC [Suspect]
     Dosage: 5 MG (5 MG, 1 D) PER ORAL
     Route: 048
  6. BISOPROLOL FUMARATE [Suspect]
     Dosage: 5 MG (5 MG, 1 D) PER ORAL
     Route: 048

REACTIONS (5)
  - DIFFICULTY IN WALKING [None]
  - HYPOKALAEMIA [None]
  - MUSCLE SPASMS [None]
  - MUSCULOSKELETAL STIFFNESS [None]
  - RHABDOMYOLYSIS [None]
